FAERS Safety Report 20017860 (Version 1)
Quarter: 2021Q4

REPORT INFORMATION
  Report Type: Spontaneous
  Country: KR (occurrence: KR)
  Receive Date: 20211101
  Receipt Date: 20211101
  Transmission Date: 20220303
  Serious: Yes (Other)
  Sender: FDA-Public Use
  Company Number: KR-AMGEN-KORSL2021166844

PATIENT
  Age: 56 Year
  Sex: Female

DRUGS (28)
  1. FILGRASTIM [Suspect]
     Active Substance: FILGRASTIM
     Indication: Product used for unknown indication
     Dosage: 1 DF, QD
     Route: 042
     Dates: start: 20160328, end: 20160328
  2. APREPITANT [Suspect]
     Active Substance: APREPITANT
     Indication: Product used for unknown indication
     Dosage: 150 MG, QD
     Route: 042
     Dates: start: 20160315, end: 20160315
  3. APREPITANT [Suspect]
     Active Substance: APREPITANT
     Dosage: 150 MG, QD
     Route: 042
     Dates: start: 20160404, end: 20160404
  4. CYCLOPHOSPHAMIDE [Concomitant]
     Active Substance: CYCLOPHOSPHAMIDE
     Indication: Product used for unknown indication
     Dosage: 985 MG, QD
     Route: 042
     Dates: start: 20160315, end: 20160315
  5. CYCLOPHOSPHAMIDE [Concomitant]
     Active Substance: CYCLOPHOSPHAMIDE
     Dosage: 985 MG, QD
     Route: 042
     Dates: start: 20160404, end: 20160404
  6. DEXAMETHASONE [Concomitant]
     Active Substance: DEXAMETHASONE
     Indication: Product used for unknown indication
     Dosage: 0.5 MG, QD
     Route: 048
     Dates: start: 20160316, end: 20160318
  7. DEXAMETHASONE [Concomitant]
     Active Substance: DEXAMETHASONE
     Dosage: 0.5 MG, QD
     Route: 048
     Dates: start: 20160405, end: 20160407
  8. DEXAMETHASONE [Concomitant]
     Active Substance: DEXAMETHASONE
     Dosage: 5 MG, QD
     Route: 042
     Dates: start: 20160315, end: 20160315
  9. DEXAMETHASONE [Concomitant]
     Active Substance: DEXAMETHASONE
     Dosage: 5 MG, QD
     Route: 042
     Dates: start: 20160404, end: 20160404
  10. DEXRAZOXANE [Concomitant]
     Active Substance: DEXRAZOXANE
     Indication: Product used for unknown indication
     Dosage: 985 MG, QD
     Route: 042
     Dates: start: 20160315, end: 20160315
  11. DEXRAZOXANE [Concomitant]
     Active Substance: DEXRAZOXANE
     Dosage: 985 MG, QD
     Route: 042
     Dates: start: 20160404, end: 20160404
  12. DIPHENYLPYRALINE [Concomitant]
     Active Substance: DIPHENYLPYRALINE
     Indication: Product used for unknown indication
     Dosage: 1.5 MG, QD
     Route: 058
     Dates: start: 20160315, end: 20160315
  13. DIPHENYLPYRALINE [Concomitant]
     Active Substance: DIPHENYLPYRALINE
     Dosage: 1.5 MG, QD
     Route: 058
     Dates: start: 20160404, end: 20160404
  14. DOXORUBICIN [Concomitant]
     Active Substance: DOXORUBICIN
     Indication: Product used for unknown indication
     Dosage: 98 MG, QD
     Route: 042
     Dates: start: 20160315, end: 20160315
  15. DOXORUBICIN [Concomitant]
     Active Substance: DOXORUBICIN
     Dosage: 98 MG, QD
     Route: 042
     Dates: start: 20160404, end: 20160404
  16. HEPARIN [Concomitant]
     Active Substance: HEPARIN SODIUM
     Indication: Product used for unknown indication
     Dosage: 0.5 DF, QD
     Route: 042
     Dates: start: 20160315, end: 20160315
  17. HEPARIN [Concomitant]
     Active Substance: HEPARIN SODIUM
     Dosage: 0.5 DF, QD
     Route: 042
     Dates: start: 20160404, end: 20160404
  18. LENOGRASTIM [Concomitant]
     Active Substance: LENOGRASTIM
     Indication: Product used for unknown indication
     Dosage: 1 DF, QD
     Route: 058
     Dates: start: 20160304, end: 20160304
  19. METOCLOPRAMIDE [Concomitant]
     Active Substance: METOCLOPRAMIDE
     Indication: Product used for unknown indication
     Dosage: 1 DF, QD
     Route: 048
     Dates: start: 20160315, end: 20160319
  20. METOCLOPRAMIDE [Concomitant]
     Active Substance: METOCLOPRAMIDE
     Dosage: 5 MG, QD
     Dates: start: 20160404, end: 20160408
  21. METOCLOPRAMIDE [Concomitant]
     Active Substance: METOCLOPRAMIDE
     Dosage: 10 MG, QD
     Route: 042
     Dates: start: 20160315, end: 20160315
  22. METOCLOPRAMIDE [Concomitant]
     Active Substance: METOCLOPRAMIDE
     Dosage: 10 MG, QD
     Route: 042
     Dates: start: 20160404, end: 20160404
  23. PALONOSETRON [Concomitant]
     Active Substance: PALONOSETRON
     Indication: Product used for unknown indication
     Dosage: 0.25 MG, QD
     Route: 042
     Dates: start: 20160315, end: 20160315
  24. PALONOSETRON [Concomitant]
     Active Substance: PALONOSETRON
     Dosage: 0.25 MG, QD
     Route: 042
     Dates: start: 20160404, end: 20160404
  25. ACETAMINOPHEN [Concomitant]
     Active Substance: ACETAMINOPHEN
     Indication: Product used for unknown indication
     Dosage: 650 MG, QD
     Route: 048
     Dates: start: 20160328, end: 20210330
  26. ACETAMINOPHEN [Concomitant]
     Active Substance: ACETAMINOPHEN
     Dosage: 650 MG, QD
     Route: 048
     Dates: start: 20160404, end: 20160406
  27. RANITIDINE [Concomitant]
     Active Substance: RANITIDINE
     Indication: Product used for unknown indication
     Dosage: 75 MG, QD
     Route: 048
     Dates: start: 20160315, end: 20160321
  28. SILYMARIN 100 [Concomitant]
     Indication: Product used for unknown indication
     Dosage: 140 MG, QD
     Route: 048
     Dates: start: 20160404, end: 20160414

REACTIONS (2)
  - Neutrophil count decreased [Recovered/Resolved]
  - Neutrophil count decreased [Recovered/Resolved]

NARRATIVE: CASE EVENT DATE: 20160328
